FAERS Safety Report 9345967 (Version 3)
Quarter: 2014Q2

REPORT INFORMATION
  Report Type: Report from Study
  Country: US (occurrence: US)
  Receive Date: 20130613
  Receipt Date: 20140428
  Transmission Date: 20141212
  Serious: Yes (Other)
  Sender: FDA-Public Use
  Company Number: US-SANOFI-AVENTIS-2013SA033658

PATIENT
  Age: 39 Year
  Sex: Female
  Weight: 63.27 kg

DRUGS (10)
  1. DOCETAXEL [Suspect]
     Indication: HER-2 POSITIVE BREAST CANCER
     Route: 065
     Dates: start: 20121016, end: 20130107
  2. DOCETAXEL [Suspect]
     Indication: BREAST CANCER
     Route: 065
     Dates: start: 20121016, end: 20130107
  3. DOCETAXEL [Suspect]
     Indication: HER-2 POSITIVE BREAST CANCER
     Route: 042
     Dates: start: 20130108, end: 20130108
  4. DOCETAXEL [Suspect]
     Indication: BREAST CANCER
     Route: 042
     Dates: start: 20130108, end: 20130108
  5. TRASTUZUMAB EMTANSINE [Suspect]
     Indication: HER-2 POSITIVE BREAST CANCER
     Route: 042
     Dates: start: 20121016
  6. TRASTUZUMAB EMTANSINE [Suspect]
     Indication: BREAST CANCER
     Route: 042
     Dates: start: 20121016
  7. TRASTUZUMAB EMTANSINE [Suspect]
     Indication: HER-2 POSITIVE BREAST CANCER
     Route: 042
     Dates: start: 20130108, end: 20130108
  8. TRASTUZUMAB EMTANSINE [Suspect]
     Indication: BREAST CANCER
     Route: 042
     Dates: start: 20130108, end: 20130108
  9. NEULASTA [Concomitant]
     Route: 065
     Dates: start: 20121017, end: 20130109
  10. VICODIN [Concomitant]
     Dates: start: 20121113

REACTIONS (1)
  - Dermatomyositis [Recovered/Resolved]
